FAERS Safety Report 15496502 (Version 2)
Quarter: 2018Q4

REPORT INFORMATION
  Report Type: Report from Study
  Country: None (occurrence: AR)
  Receive Date: 20181012
  Receipt Date: 20181105
  Transmission Date: 20190205
  Serious: Yes (Hospitalization, Other)
  Sender: FDA-Public Use
  Company Number: AR-ABBVIE-18K-007-2517336-00

PATIENT
  Sex: Male

DRUGS (4)
  1. HUMIRA [Suspect]
     Active Substance: ADALIMUMAB
     Indication: RHEUMATOID ARTHRITIS
     Route: 058
     Dates: start: 20110905
  2. METHOTREXATE. [Concomitant]
     Active Substance: METHOTREXATE
     Indication: PRODUCT USED FOR UNKNOWN INDICATION
  3. HUMIRA [Suspect]
     Active Substance: ADALIMUMAB
     Indication: RHEUMATOID ARTHRITIS
     Route: 058
     Dates: end: 201808
  4. LEBOCAR [Concomitant]
     Indication: PARKINSON^S DISEASE

REACTIONS (14)
  - Pain [Unknown]
  - Postoperative adhesion [Not Recovered/Not Resolved]
  - Infected skin ulcer [Not Recovered/Not Resolved]
  - Foot deformity [Unknown]
  - Arthralgia [Not Recovered/Not Resolved]
  - Post procedural infection [Recovered/Resolved]
  - Urinary retention [Unknown]
  - Investigation abnormal [Unknown]
  - Urinary tract obstruction [Unknown]
  - Skin atrophy [Unknown]
  - Prostatomegaly [Unknown]
  - Hyperkeratosis [Unknown]
  - Skin ulcer [Unknown]
  - Arthritis [Unknown]

NARRATIVE: CASE EVENT DATE: 2014
